FAERS Safety Report 5523547-3 (Version None)
Quarter: 2007Q4

REPORT INFORMATION
  Report Type: 
  Country: None (occurrence: None)
  Receive Date: 20071121
  Receipt Date: 20071115
  Transmission Date: 20080405
  Serious: Yes (Other)
  Sender: FDA-Public Use
  Company Number: US-BAYER-200712549BCC

PATIENT
  Age: 65 Year
  Sex: Female
  Weight: 73 kg

DRUGS (2)
  1. CAMPHO-PHENIQUE COLD SORE GEL [Suspect]
     Indication: ACCIDENTAL EXPOSURE
     Route: 047
     Dates: start: 20070806
  2. SYNTHROID [Concomitant]
     Dosage: TOTAL DAILY DOSE: 0.1 MG  UNIT DOSE: 0.1 MG
     Route: 048

REACTIONS (13)
  - ACCIDENTAL EXPOSURE [None]
  - BLISTER [None]
  - BLOOD PRESSURE INCREASED [None]
  - CHEMICAL EYE INJURY [None]
  - CONJUNCTIVITIS [None]
  - CORNEAL ABRASION [None]
  - CORNEAL DISORDER [None]
  - CORNEAL OEDEMA [None]
  - EYE BURNS [None]
  - EYE PAIN [None]
  - OPTIC NERVE DISORDER [None]
  - PHOTOPHOBIA [None]
  - VISUAL ACUITY REDUCED [None]
